FAERS Safety Report 23549138 (Version 1)
Quarter: 2024Q1

REPORT INFORMATION
  Report Type: Spontaneous
  Country: US (occurrence: US)
  Receive Date: 20240221
  Receipt Date: 20240221
  Transmission Date: 20240410
  Serious: No
  Sender: FDA-Public Use
  Company Number: US-PFIZER INC-202400042655

PATIENT
  Age: 74 Year
  Sex: Male
  Weight: 61.23 kg

DRUGS (2)
  1. PAXLOVID [Suspect]
     Active Substance: NIRMATRELVIR\RITONAVIR
     Indication: COVID-19 treatment
     Dosage: (TEN DAYS DOSE)
     Dates: start: 202401, end: 202401
  2. PAXLOVID [Suspect]
     Active Substance: NIRMATRELVIR\RITONAVIR
     Dosage: 2ND CYCLE (TEN DAYS DOSE)
     Dates: start: 202401, end: 202401

REACTIONS (4)
  - COVID-19 [Unknown]
  - Disease recurrence [Unknown]
  - Off label use [Unknown]
  - Product use issue [Unknown]

NARRATIVE: CASE EVENT DATE: 20240101
